FAERS Safety Report 16593704 (Version 9)
Quarter: 2020Q4

REPORT INFORMATION
  Report Type: Spontaneous
  Country: US (occurrence: US)
  Receive Date: 20190718
  Receipt Date: 20201123
  Transmission Date: 20210113
  Serious: Yes (Congenital Anomaly, Other)
  Sender: FDA-Public Use
  Company Number: PHEH2019US029888

PATIENT
  Age: 0 Day
  Sex: Female

DRUGS (2)
  1. ZOFRAN [Suspect]
     Active Substance: ONDANSETRON HYDROCHLORIDE
     Indication: FOETAL EXPOSURE DURING PREGNANCY
     Route: 064
  2. ZOFRAN [Suspect]
     Active Substance: ONDANSETRON HYDROCHLORIDE
     Indication: FOETAL EXPOSURE DURING PREGNANCY
     Dosage: MOTHER DOSE: 08 MG, TID
     Route: 064

REACTIONS (45)
  - Congenital anomaly [Unknown]
  - Upper respiratory tract infection [Unknown]
  - Diarrhoea [Unknown]
  - Dyspnoea [Unknown]
  - Premature baby [Unknown]
  - Anhedonia [Unknown]
  - Viral infection [Unknown]
  - Rhinorrhoea [Unknown]
  - Foetal growth restriction [Unknown]
  - Seizure [Unknown]
  - Small for dates baby [Unknown]
  - Injury [Not Recovered/Not Resolved]
  - Pain [Not Recovered/Not Resolved]
  - Emotional distress [Unknown]
  - Developmental delay [Unknown]
  - Adenoiditis [Unknown]
  - Choking [Unknown]
  - Anxiety [Unknown]
  - Speech disorder [Unknown]
  - Headache [Unknown]
  - Low birth weight baby [Unknown]
  - Discordant twin [Unknown]
  - Bronchitis [Unknown]
  - Nasopharyngitis [Unknown]
  - Snoring [Unknown]
  - Blepharospasm [Unknown]
  - Motor developmental delay [Unknown]
  - Epilepsy [Unknown]
  - Foetal exposure during pregnancy [Unknown]
  - Hypotonia [Unknown]
  - Tonsillitis [Unknown]
  - Urinary tract infection [Unknown]
  - Conjunctivitis [Unknown]
  - Contusion [Unknown]
  - Autism spectrum disorder [Unknown]
  - Cough [Unknown]
  - Vomiting [Unknown]
  - Sleep apnoea syndrome [Unknown]
  - Fine motor delay [Unknown]
  - Otitis media acute [Unknown]
  - Pharyngitis [Unknown]
  - Pyrexia [Unknown]
  - Balance disorder [Unknown]
  - Muscle strength abnormal [Unknown]
  - Fall [Unknown]

NARRATIVE: CASE EVENT DATE: 20021126
